FAERS Safety Report 21303569 (Version 1)
Quarter: 2022Q3

REPORT INFORMATION
  Report Type: Spontaneous
  Country: US (occurrence: US)
  Receive Date: 20220907
  Receipt Date: 20220907
  Transmission Date: 20221027
  Serious: Yes (Other)
  Sender: FDA-Public Use
  Company Number: US-TEVA-2022-US-2069953

PATIENT
  Age: 78 Year
  Sex: Female

DRUGS (1)
  1. WARFARIN [Suspect]
     Active Substance: WARFARIN
     Indication: Hypercoagulation
     Route: 065

REACTIONS (2)
  - Cardiac ventricular thrombosis [Recovered/Resolved]
  - Malaise [Recovered/Resolved]
